FAERS Safety Report 14834656 (Version 1)
Quarter: 2018Q2

REPORT INFORMATION
  Report Type: Report from Study
  Country: None (occurrence: US)
  Receive Date: 20180501
  Receipt Date: 20180501
  Transmission Date: 20180711
  Serious: Yes (Death)
  Sender: FDA-Public Use
  Company Number: US-BAUSCH-BL-2018-012241

PATIENT
  Sex: Female

DRUGS (1)
  1. ALREX [Suspect]
     Active Substance: LOTEPREDNOL ETABONATE
     Indication: HYPERSENSITIVITY
     Dosage: 1 DROP IN BOTH EYES
     Route: 047
     Dates: start: 2017

REACTIONS (1)
  - Death [Fatal]
